FAERS Safety Report 4975402-5 (Version None)
Quarter: 2006Q2

REPORT INFORMATION
  Report Type: 
  Country: None (occurrence: None)
  Receive Date: 20060418
  Receipt Date: 20051025
  Transmission Date: 20061013
  Serious: Yes (Hospitalization, Disabling)
  Sender: FDA-Public Use
  Company Number: US-MERCK-0510USA09290

PATIENT
  Age: 53 Year
  Sex: Male
  Weight: 83 kg

DRUGS (7)
  1. VIOXX [Suspect]
     Indication: ARTHRALGIA
     Route: 048
     Dates: start: 20000101, end: 20040101
  2. VIOXX [Suspect]
     Route: 048
     Dates: start: 20000101, end: 20040101
  3. ACETAMINOPHEN [Concomitant]
     Route: 065
  4. AVALIDE [Concomitant]
     Route: 065
  5. NEXIUM [Concomitant]
     Route: 065
  6. NORVASC [Concomitant]
     Route: 065
  7. TOPROL-XL [Concomitant]
     Route: 048

REACTIONS (7)
  - ACUTE MYOCARDIAL INFARCTION [None]
  - CEREBROVASCULAR ACCIDENT [None]
  - CORONARY ARTERY DISEASE [None]
  - EAR INFECTION [None]
  - PULMONARY EMBOLISM [None]
  - RETROPERITONEAL HAEMATOMA [None]
  - SLEEP DISORDER [None]
